FAERS Safety Report 5781605-2 (Version None)
Quarter: 2008Q2

REPORT INFORMATION
  Report Type: 
  Country: None (occurrence: None)
  Receive Date: 20080623
  Receipt Date: 20080617
  Transmission Date: 20081010
  Serious: Yes (Other)
  Sender: FDA-Public Use
  Company Number: DE-JNJFOC-20080603984

PATIENT
  Sex: Female

DRUGS (4)
  1. DOLORMIN EXTRA [Suspect]
     Route: 048
  2. DOLORMIN EXTRA [Suspect]
     Indication: HEADACHE
     Route: 048
  3. AMLODIPINE [Concomitant]
     Indication: HYPERTENSION
  4. HYDROCHLOROTHIAZIDE [Concomitant]
     Indication: HYPERTENSION

REACTIONS (1)
  - THROMBOCYTOPENIA [None]
